FAERS Safety Report 7090930-7 (Version None)
Quarter: 2010Q4

REPORT INFORMATION
  Report Type: 
  Country: None (occurrence: None)
  Receive Date: 20101109
  Receipt Date: 20101026
  Transmission Date: 20110411
  Serious: Yes (Hospitalization)
  Sender: FDA-Public Use
  Company Number: DE-AMGEN-QUU420677

PATIENT

DRUGS (2)
  1. ENBREL [Suspect]
     Indication: PSORIASIS
     Dosage: UNK UNK, UNK
     Route: 058
     Dates: start: 20090403, end: 20100516
  2. ENBREL [Suspect]
     Dosage: UNKNOWN AMOUNT ONCE WEEKLY
     Route: 058
     Dates: start: 20090403, end: 20100516

REACTIONS (1)
  - CARDIOMYOPATHY [None]
